FAERS Safety Report 12946210 (Version 1)
Quarter: 2016Q4

REPORT INFORMATION
  Report Type: Spontaneous
  Country: US (occurrence: US)
  Receive Date: 20161115
  Receipt Date: 20161115
  Transmission Date: 20170207
  Serious: Yes (Hospitalization)
  Sender: FDA-Public Use
  Company Number: None

PATIENT
  Age: 49 Year
  Sex: Male

DRUGS (1)
  1. XOLAIR [Suspect]
     Active Substance: OMALIZUMAB
     Indication: ASTHMA
     Dosage: XOLAIR 225MG - SUBCUTANEOUS - Q2W
     Route: 058
     Dates: start: 20150419

REACTIONS (1)
  - Surgery [None]

NARRATIVE: CASE EVENT DATE: 20161114
